FAERS Safety Report 9396697 (Version 4)
Quarter: 2013Q3

REPORT INFORMATION
  Report Type: Spontaneous
  Country: FR (occurrence: FR)
  Receive Date: 20130712
  Receipt Date: 20130909
  Transmission Date: 20140515
  Serious: Yes (Death, Hospitalization)
  Sender: FDA-Public Use
  Company Number: FR-ROCHE-1246570

PATIENT
  Age: 66 Year
  Sex: Male

DRUGS (3)
  1. ROCEPHINE [Suspect]
     Indication: PRODUCT USED FOR UNKNOWN INDICATION
     Route: 041
     Dates: start: 20130405, end: 20130422
  2. VANCOMYCINE [Suspect]
     Indication: PRODUCT USED FOR UNKNOWN INDICATION
     Route: 041
     Dates: start: 20130405, end: 20130422
  3. OMNIPAQUE [Suspect]
     Indication: PRODUCT USED FOR UNKNOWN INDICATION
     Dosage: 350 MG/ML INJECTION
     Route: 042
     Dates: start: 20130417, end: 20130423

REACTIONS (3)
  - Renal failure acute [Fatal]
  - Renal tubular necrosis [Fatal]
  - Rash maculo-papular [Recovered/Resolved]
